FAERS Safety Report 19950441 (Version 1)
Quarter: 2021Q4

REPORT INFORMATION
  Report Type: Spontaneous
  Country: US (occurrence: US)
  Receive Date: 20211011
  Receipt Date: 20211011
  Transmission Date: 20220303
  Serious: Yes (Hospitalization)
  Sender: FDA-Public Use
  Company Number: None

PATIENT
  Sex: Male

DRUGS (6)
  1. DOFETILIDE [Suspect]
     Active Substance: DOFETILIDE
     Dosage: ?          OTHER FREQUENCY:Q12HR;
     Route: 048
     Dates: start: 20180425
  2. CLINDAMYCIN [Concomitant]
     Active Substance: CLINDAMYCIN
  3. FINASTERIDE [Concomitant]
     Active Substance: FINASTERIDE
  4. METHOCARBAMOL [Concomitant]
     Active Substance: METHOCARBAMOL
  5. OXYCODONE AND ACETAMINOPHEN [Concomitant]
     Active Substance: ACETAMINOPHEN\OXYCODONE HYDROCHLORIDE
  6. TAMSULOSIN [Concomitant]
     Active Substance: TAMSULOSIN

REACTIONS (1)
  - Spinal operation [None]
